FAERS Safety Report 7148401-5 (Version None)
Quarter: 2010Q4

REPORT INFORMATION
  Report Type: 
  Country: None (occurrence: None)
  Receive Date: 20101209
  Receipt Date: 20101130
  Transmission Date: 20110411
  Serious: Yes (Other)
  Sender: FDA-Public Use
  Company Number: ES-BAXTER-2010BH029213

PATIENT
  Age: 57 Year
  Sex: Male

DRUGS (2)
  1. FEIBA [Suspect]
     Indication: HAEMOPHILIA
     Route: 065
  2. FEIBA [Suspect]
     Indication: FACTOR VIII INHIBITION
     Route: 065

REACTIONS (2)
  - CHEST PAIN [None]
  - THROMBOPHLEBITIS SUPERFICIAL [None]
